FAERS Safety Report 20741391 (Version 3)
Quarter: 2023Q1

REPORT INFORMATION
  Report Type: Spontaneous
  Country: US (occurrence: US)
  Receive Date: 20220422
  Receipt Date: 20230203
  Transmission Date: 20230418
  Serious: Yes (Other)
  Sender: FDA-Public Use
  Company Number: US-PFIZER INC-202101461646

PATIENT
  Age: 85 Year
  Sex: Female
  Weight: 58.51 kg

DRUGS (2)
  1. PREMARIN [Suspect]
     Active Substance: ESTROGENS, CONJUGATED
     Indication: Urinary tract infection
     Dosage: 0.625MG RUB IT ON THE OUTSIDE OF HER VAGINA TWICE WEEKLY
     Route: 067
     Dates: start: 202012
  2. PREMARIN [Suspect]
     Active Substance: ESTROGENS, CONJUGATED
     Indication: Nephrolithiasis

REACTIONS (14)
  - Lithotripsy [Unknown]
  - Near death experience [Not Recovered/Not Resolved]
  - Cardiac failure congestive [Unknown]
  - Parkinson^s disease [Unknown]
  - Insomnia [Unknown]
  - Swelling [Unknown]
  - Lymphoedema [Unknown]
  - Lymphorrhoea [Unknown]
  - Autonomic nervous system imbalance [Unknown]
  - Off label use [Unknown]
  - Drug ineffective for unapproved indication [Unknown]
  - Product prescribing error [Unknown]
  - Product administered at inappropriate site [Unknown]
  - Off label use [Unknown]

NARRATIVE: CASE EVENT DATE: 20201201
